FAERS Safety Report 7247867-X (Version None)
Quarter: 2011Q1

REPORT INFORMATION
  Report Type: 
  Country: None (occurrence: None)
  Receive Date: 20110127
  Receipt Date: 20110120
  Transmission Date: 20110831
  Serious: Yes (Other)
  Sender: FDA-Public Use
  Company Number: US-PFIZER INC-2011014958

PATIENT
  Sex: Female
  Weight: 90.703 kg

DRUGS (8)
  1. LYRICA [Suspect]
     Dosage: 150 MG, 2X/DAY
     Route: 048
     Dates: start: 20110101
  2. NEURONTIN [Suspect]
     Dosage: 600 MG, 3X/DAY
     Route: 048
  3. GLIMEPIRIDE [Concomitant]
     Indication: DIABETES MELLITUS
     Dosage: 2 MG, 1X/DAY
  4. NEURONTIN [Suspect]
     Indication: NEURALGIA
     Dosage: 300 MG, 3X/DAY
     Route: 048
     Dates: start: 20101109
  5. EFFEXOR [Suspect]
     Indication: ANXIETY
     Dosage: 37.5 MG, 2X/DAY
     Route: 048
  6. LYRICA [Suspect]
     Indication: NEURALGIA
     Dosage: 50 MG, 2X/DAY
     Route: 048
     Dates: start: 20110104, end: 20110101
  7. MELOXICAM [Concomitant]
     Indication: ANTIINFLAMMATORY THERAPY
     Dosage: 15 MG, 1X/DAY
  8. CLONAZEPAM [Concomitant]
     Indication: INSOMNIA
     Dosage: 0.5 MG, 1X/DAY

REACTIONS (22)
  - NASAL CONGESTION [None]
  - NASAL DRYNESS [None]
  - NAUSEA [None]
  - DEPRESSION [None]
  - OEDEMA PERIPHERAL [None]
  - VISION BLURRED [None]
  - SOMNOLENCE [None]
  - SUICIDAL IDEATION [None]
  - DRY MOUTH [None]
  - HEADACHE [None]
  - DYSSTASIA [None]
  - GAIT DISTURBANCE [None]
  - ANXIETY [None]
  - DIZZINESS [None]
  - CONSTIPATION [None]
  - FALL [None]
  - ASTHENIA [None]
  - FATIGUE [None]
  - LETHARGY [None]
  - NEURALGIA [None]
  - GASTROINTESTINAL DISORDER [None]
  - WEIGHT LOSS POOR [None]
